FAERS Safety Report 4334914-8 (Version None)
Quarter: 2004Q2

REPORT INFORMATION
  Report Type: 
  Country: None (occurrence: None)
  Receive Date: 20040408
  Receipt Date: 20040301
  Transmission Date: 20050107
  Serious: Yes (Death, Life-Threatening)
  Sender: FDA-Public Use
  Company Number: JP-MERCK-0403USA00105

PATIENT
  Age: 67 Year
  Sex: Male

DRUGS (5)
  1. FOSAMAX [Suspect]
     Indication: OSTEOPOROSIS
     Route: 048
     Dates: start: 20031031, end: 20031210
  2. ENDOXAN [Suspect]
     Indication: WEGENER'S GRANULOMATOSIS
     Route: 048
     Dates: start: 20030202, end: 20031205
  3. TAKEPRON [Suspect]
     Indication: GASTRIC ULCER
     Route: 048
     Dates: start: 20031031, end: 20031222
  4. FASTIC [Suspect]
     Indication: DIABETES MELLITUS
     Route: 048
     Dates: start: 20031117, end: 20031210
  5. PREDNISOLONE [Concomitant]
     Indication: WEGENER'S GRANULOMATOSIS
     Route: 048
     Dates: start: 20030627, end: 20031213

REACTIONS (4)
  - NIKOLSKY'S SIGN [None]
  - OSTEOPOROSIS [None]
  - PNEUMONIA [None]
  - TOXIC EPIDERMAL NECROLYSIS [None]
